FAERS Safety Report 16256692 (Version 1)
Quarter: 2019Q2

REPORT INFORMATION
  Report Type: Spontaneous
  Country: US (occurrence: US)
  Receive Date: 20190327
  Receipt Date: 20190327
  Transmission Date: 20190711
  Serious: No
  Sender: FDA-Public Use
  Company Number: None

PATIENT
  Age: 52 Year
  Sex: Male

DRUGS (2)
  1. LIDOCAINE. [Suspect]
     Active Substance: LIDOCAINE
     Route: 042
  2. LIDOCAINE. [Suspect]
     Active Substance: LIDOCAINE

REACTIONS (3)
  - Incorrect route of product administration [None]
  - Physical product label issue [None]
  - Product label confusion [None]
